FAERS Safety Report 8287931-X (Version None)
Quarter: 2012Q2

REPORT INFORMATION
  Report Type: 
  Country: None (occurrence: None)
  Receive Date: 20120416
  Receipt Date: 20120405
  Transmission Date: 20120825
  Serious: Yes (Life-Threatening, Hospitalization)
  Sender: FDA-Public Use
  Company Number: DE-NOVOPROD-347429

PATIENT
  Age: 42 Year
  Sex: Female
  Weight: 74 kg

DRUGS (4)
  1. NORDITROPIN [Suspect]
     Indication: GROWTH HORMONE DEFICIENCY
     Dosage: 0.2 MG, QD
     Route: 058
     Dates: start: 20080625, end: 20110401
  2. LEVOTHYROXINE SODIUM [Concomitant]
     Indication: AUTOIMMUNE THYROIDITIS
     Dosage: 75 UNK, QD
  3. HYDROCORTISON                      /00028601/ [Concomitant]
     Dosage: 10 MG, QD
     Dates: start: 20030101
  4. SEROQUEL [Concomitant]
     Indication: PSYCHOTIC DISORDER
     Dosage: 500 MG, QD
     Dates: start: 20030101

REACTIONS (1)
  - ANAPLASTIC ASTROCYTOMA [None]
